FAERS Safety Report 5377472-1 (Version None)
Quarter: 2007Q3

REPORT INFORMATION
  Report Type: 
  Country: None (occurrence: None)
  Receive Date: 20070703
  Receipt Date: 20070626
  Transmission Date: 20080115
  Serious: Yes (Hospitalization)
  Sender: FDA-Public Use
  Company Number: US-AMGEN-US222848

PATIENT
  Sex: Male
  Weight: 69 kg

DRUGS (7)
  1. ARANESP [Suspect]
     Indication: DIALYSIS
     Dates: start: 20060201, end: 20060901
  2. EPOGEN [Suspect]
     Indication: DIALYSIS
     Route: 058
     Dates: start: 20060901
  3. FOLIC ACID [Concomitant]
  4. OXYGEN [Concomitant]
  5. ALLOPURINOL [Concomitant]
     Dates: start: 20040101
  6. OXYCONTIN [Concomitant]
     Dates: start: 20040101
  7. KAYEXALATE [Concomitant]
     Dates: start: 20060601

REACTIONS (2)
  - HAEMOGLOBIN DECREASED [None]
  - SICKLE CELL ANAEMIA WITH CRISIS [None]
